FAERS Safety Report 23135274 (Version 1)
Quarter: 2023Q4

REPORT INFORMATION
  Report Type: Spontaneous
  Country: CN (occurrence: CN)
  Receive Date: 20231101
  Receipt Date: 20231101
  Transmission Date: 20240110
  Serious: Yes (Disabling, Other)
  Sender: FDA-Public Use
  Company Number: CN-009507513-2310CHN012171

PATIENT
  Age: 37 Year
  Sex: Female
  Weight: 59 kg

DRUGS (1)
  1. PREVYMIS [Suspect]
     Active Substance: LETERMOVIR
     Indication: Bone giant cell tumour
     Dosage: 240 MG, QD, ORAL
     Route: 048
     Dates: start: 20231015, end: 20231024

REACTIONS (10)
  - Hypersensitivity [Not Recovered/Not Resolved]
  - Cardiac failure [Unknown]
  - Nausea [Unknown]
  - White blood cell count decreased [Unknown]
  - Palpitations [Unknown]
  - General physical health deterioration [Unknown]
  - Anaemia [Unknown]
  - Lip haemorrhage [Unknown]
  - Lip dry [Unknown]
  - Product use in unapproved indication [Unknown]

NARRATIVE: CASE EVENT DATE: 20231024
